FAERS Safety Report 8168217-0 (Version None)
Quarter: 2012Q1

REPORT INFORMATION
  Report Type: 
  Country: None (occurrence: None)
  Receive Date: 20120227
  Receipt Date: 20120221
  Transmission Date: 20120608
  Serious: Yes (Other)
  Sender: FDA-Public Use
  Company Number: US-PFIZER INC-2012047085

PATIENT
  Sex: Female

DRUGS (6)
  1. CHLORPROMAZINE [Concomitant]
     Indication: NAUSEA
     Dosage: 50 MG, 3X/DAY
  2. MS CONTIN [Concomitant]
     Dosage: 15 MG, 2X/DAY
  3. ACLOVATE [Concomitant]
     Dosage: APPLY TWICE A DAY
  4. OXYCODONE [Concomitant]
     Dosage: 10 MG, EVERY 4 TO 6 HOURS AS NEEDED
  5. LYRICA [Suspect]
     Dosage: 150 MG, 2X/DAY
     Route: 048
  6. ARMODAFINIL [Concomitant]
     Dosage: 150 MG, UNK
     Route: 048

REACTIONS (8)
  - DEPRESSION [None]
  - EXERCISE TOLERANCE DECREASED [None]
  - COUGH [None]
  - DIZZINESS [None]
  - DYSPNOEA [None]
  - ANXIETY [None]
  - FATIGUE [None]
  - HEADACHE [None]
